FAERS Safety Report 8534799-X (Version None)
Quarter: 2012Q3

REPORT INFORMATION
  Report Type: 
  Country: None (occurrence: None)
  Receive Date: 20120724
  Receipt Date: 20120718
  Transmission Date: 20120928
  Serious: Yes (Life-Threatening, Hospitalization)
  Sender: FDA-Public Use
  Company Number: JP-CELGENEUS-087-50794-12071438

PATIENT
  Sex: Male
  Weight: 72 kg

DRUGS (35)
  1. VIDAZA [Suspect]
     Dosage: 37.5 MILLIGRAM/SQ. METER
     Route: 058
     Dates: start: 20120516, end: 20120522
  2. SULFAMETHOXAZOLE AND TRIMETHOPRIM [Concomitant]
     Route: 065
  3. CEFEPIME DIHYDROCHLORIDE HYDRATE [Concomitant]
     Route: 065
     Dates: start: 20120412, end: 20120419
  4. AUGMENTIN '500' [Concomitant]
     Route: 065
     Dates: start: 20120530, end: 20120612
  5. ITRACONAZOLE [Concomitant]
     Route: 065
     Dates: start: 20120629
  6. MEROPENEM [Concomitant]
     Route: 065
     Dates: start: 20120430, end: 20120503
  7. AMBISOME [Concomitant]
     Route: 065
     Dates: start: 20120503, end: 20120514
  8. VFEND [Concomitant]
     Route: 065
     Dates: start: 20120515, end: 20120520
  9. VERAPAMIL HCL [Concomitant]
     Route: 065
     Dates: start: 20120525
  10. RAMELTEON [Concomitant]
     Route: 065
     Dates: start: 20120418, end: 20120424
  11. SULFAMETHOXAZOLE AND TRIMETHOPRIM [Concomitant]
     Route: 065
     Dates: start: 20120229
  12. D-SORBITOL [Concomitant]
     Route: 065
  13. ITRACONAZOLE [Concomitant]
     Route: 065
     Dates: start: 20120409, end: 20120502
  14. ISONIAZID [Concomitant]
     Route: 065
     Dates: start: 20120501
  15. CLARITHROMYCIN [Concomitant]
     Route: 065
     Dates: start: 20120517, end: 20120523
  16. TORSEMIDE [Concomitant]
     Route: 065
     Dates: start: 20120501
  17. D-SORBITOL [Concomitant]
     Route: 065
     Dates: start: 20120301
  18. SLOW-K [Concomitant]
     Route: 065
     Dates: end: 20120703
  19. FOIPAN [Concomitant]
     Route: 065
  20. VIDAZA [Suspect]
     Dosage: 37.5 MILLIGRAM/SQ. METER
     Route: 058
     Dates: start: 20120613, end: 20120619
  21. FLUCONAZOLE [Concomitant]
     Route: 065
     Dates: start: 20120229, end: 20120408
  22. LEVOFLOXACIN [Concomitant]
     Route: 065
     Dates: start: 20120424, end: 20120430
  23. CLARITHROMYCIN [Concomitant]
     Route: 065
     Dates: start: 20120503, end: 20120509
  24. CEFEPIME DIHYDROCHLORIDE HYDRATE [Concomitant]
     Route: 065
     Dates: start: 20120427, end: 20120430
  25. VIDAZA [Suspect]
     Indication: MYELODYSPLASTIC SYNDROME
     Dosage: 75 MILLIGRAM/SQ. METER
     Route: 058
     Dates: start: 20120227, end: 20120304
  26. RAMELTEON [Concomitant]
     Route: 065
     Dates: start: 20120516, end: 20120522
  27. CEFEPIME DIHYDROCHLORIDE HYDRATE [Concomitant]
     Route: 065
     Dates: start: 20120322, end: 20120326
  28. LEVOFLOXACIN [Concomitant]
     Route: 065
     Dates: start: 20120327, end: 20120329
  29. LEVOFLOXACIN [Concomitant]
     Route: 065
     Dates: start: 20120530, end: 20120612
  30. RAMELTEON [Concomitant]
     Route: 065
     Dates: start: 20120227, end: 20120304
  31. RAMELTEON [Concomitant]
     Route: 065
     Dates: start: 20120613, end: 20120619
  32. VIDAZA [Suspect]
     Dosage: 37.5 MILLIGRAM/SQ. METER
     Route: 058
     Dates: start: 20120418, end: 20120424
  33. AUGMENTIN '500' [Concomitant]
     Route: 065
     Dates: start: 20120405, end: 20120413
  34. AMBISOME [Concomitant]
     Route: 065
     Dates: start: 20120521, end: 20120628
  35. PYDOXAL [Concomitant]
     Route: 065
     Dates: start: 20120525

REACTIONS (2)
  - FEBRILE NEUTROPENIA [None]
  - NEUTROPHIL COUNT DECREASED [None]
